FAERS Safety Report 19771281 (Version 2)
Quarter: 2021Q3

REPORT INFORMATION
  Report Type: Other
  Country: TR (occurrence: TR)
  Receive Date: 20210831
  Receipt Date: 20210831
  Transmission Date: 20211014
  Serious: Yes (Death, Other)
  Sender: FDA-Public Use
  Company Number: TR-ROCHE-2900785

PATIENT

DRUGS (7)
  1. ATEZOLIZUMAB. [Suspect]
     Active Substance: ATEZOLIZUMAB
     Indication: NEOPLASM MALIGNANT
     Route: 065
  2. NIVOLUMAB [Suspect]
     Active Substance: NIVOLUMAB
     Indication: NEOPLASM MALIGNANT
     Route: 065
  3. DURVALUMAB. [Suspect]
     Active Substance: DURVALUMAB
     Indication: NEOPLASM MALIGNANT
     Route: 065
  4. AVELUMAB [Suspect]
     Active Substance: AVELUMAB
     Indication: NEOPLASM MALIGNANT
     Route: 065
  5. TREMELIMUMAB. [Suspect]
     Active Substance: TREMELIMUMAB
     Indication: NEOPLASM MALIGNANT
     Route: 065
  6. PEMBROLIZUMAB. [Suspect]
     Active Substance: PEMBROLIZUMAB
     Indication: NEOPLASM MALIGNANT
     Route: 065
  7. IPILIMUMAB [Suspect]
     Active Substance: IPILIMUMAB
     Indication: NEOPLASM MALIGNANT
     Route: 065

REACTIONS (22)
  - Myocarditis [Fatal]
  - Arrhythmia [Unknown]
  - Hypophysitis [Unknown]
  - Vitiligo [Unknown]
  - Enterocolitis [Recovered/Resolved]
  - Hyperglycaemia [Unknown]
  - Pancreatitis [Unknown]
  - Pneumonitis [Fatal]
  - Hepatitis [Unknown]
  - Colitis [Unknown]
  - Toxic epidermal necrolysis [Unknown]
  - Haemolytic anaemia [Unknown]
  - Gastritis [Unknown]
  - Optic neuritis [Unknown]
  - Thrombocytopenia [Unknown]
  - Nephritis [Unknown]
  - Myositis [Unknown]
  - Haemolysis [Recovered/Resolved]
  - Hypothyroidism [Unknown]
  - Dermatitis [Unknown]
  - Hyperthyroidism [Unknown]
  - Arthritis [Unknown]
